FAERS Safety Report 8153707-7 (Version None)
Quarter: 2012Q1

REPORT INFORMATION
  Report Type: 
  Country: None (occurrence: None)
  Receive Date: 20120221
  Receipt Date: 20120210
  Transmission Date: 20120608
  Serious: No
  Sender: FDA-Public Use
  Company Number: US-B.I. PHARMACEUTICALS,INC./RIDGEFIELD-2011-BP-21283BP

PATIENT
  Sex: Female

DRUGS (2)
  1. SPIRIVA [Suspect]
     Indication: CHRONIC OBSTRUCTIVE PULMONARY DISEASE
     Dosage: 18 MCG
     Route: 055
     Dates: start: 20110824
  2. O2 [Concomitant]
     Route: 055

REACTIONS (6)
  - DRY MOUTH [None]
  - DYSPNOEA [None]
  - ABDOMINAL DISCOMFORT [None]
  - ANXIETY [None]
  - OROPHARYNGEAL PAIN [None]
  - DIARRHOEA [None]
